FAERS Safety Report 20521465 (Version 1)
Quarter: 2022Q1

REPORT INFORMATION
  Report Type: Spontaneous
  Country: GB (occurrence: GB)
  Receive Date: 20220226
  Receipt Date: 20220226
  Transmission Date: 20220423
  Serious: Yes (Other)
  Sender: FDA-Public Use
  Company Number: GB-AMGEN-GBRSP2022033407

PATIENT

DRUGS (1)
  1. PROLIA [Suspect]
     Active Substance: DENOSUMAB
     Indication: Osteoporosis
     Dosage: UNK
     Route: 065
     Dates: start: 20191224

REACTIONS (8)
  - Blindness transient [Unknown]
  - Speech disorder [Unknown]
  - Visual impairment [Unknown]
  - Agitation [Unknown]
  - Nervousness [Unknown]
  - Dizziness [Unknown]
  - Hypertension [Unknown]
  - Headache [Recovering/Resolving]

NARRATIVE: CASE EVENT DATE: 20200101
